FAERS Safety Report 7636833-8 (Version None)
Quarter: 2011Q3

REPORT INFORMATION
  Report Type: 
  Country: None (occurrence: None)
  Receive Date: 20110722
  Receipt Date: 20110722
  Transmission Date: 20111222
  Serious: Yes (Disabling)
  Sender: FDA-Public Use
  Company Number: None

PATIENT
  Age: 68 Year
  Sex: Female
  Weight: 58.9676 kg

DRUGS (2)
  1. AMIODARONE HCL [Suspect]
     Indication: ATRIAL FIBRILLATION
     Dosage: 2 PER DAY ORAL
     Route: 048
  2. MULTAQ [Suspect]
     Dosage: 400 MG 2 PER DAY ORAL
     Route: 048

REACTIONS (3)
  - THYROID DISORDER [None]
  - BLINDNESS [None]
  - RETINAL VEIN OCCLUSION [None]
